FAERS Safety Report 6361171-3 (Version None)
Quarter: 2009Q3

REPORT INFORMATION
  Report Type: 
  Country: None (occurrence: None)
  Receive Date: 20090918
  Receipt Date: 20090825
  Transmission Date: 20100115
  Serious: Yes (Other)
  Sender: FDA-Public Use
  Company Number: GB-ROCHE-653117

PATIENT
  Age: 43 Year
  Sex: Male

DRUGS (4)
  1. TAMIFLU [Suspect]
     Indication: DRUG USE FOR UNKNOWN INDICATION
     Route: 065
     Dates: start: 20090810, end: 20090813
  2. SALBUTAMOL [Concomitant]
     Indication: ASTHMA
     Dosage: 2 DF LONG TERM USE
     Route: 055
  3. CLENIL MODULITE [Concomitant]
     Indication: ASTHMA
     Dosage: 2DF LONG TERM USE
     Route: 055
  4. OMEPRAZOLE [Concomitant]
     Route: 048
     Dates: start: 20090805

REACTIONS (2)
  - MOUTH ULCERATION [None]
  - RASH [None]
